FAERS Safety Report 17875102 (Version 1)
Quarter: 2020Q2

REPORT INFORMATION
  Report Type: Spontaneous
  Country: CA (occurrence: CA)
  Receive Date: 20200609
  Receipt Date: 20200609
  Transmission Date: 20200714
  Serious: Yes (Hospitalization)
  Sender: FDA-Public Use
  Company Number: CA-ACCORD-184695

PATIENT
  Age: 15 Year
  Sex: Male
  Weight: 58 kg

DRUGS (15)
  1. HYDROXYZINE [Concomitant]
     Active Substance: HYDROXYZINE HYDROCHLORIDE
  2. LORAZEPAM. [Concomitant]
     Active Substance: LORAZEPAM
     Dosage: NOT SPECIFIED
  3. OLANZAPINE. [Concomitant]
     Active Substance: OLANZAPINE
     Dosage: NOT SPECIFIED
  4. ONDANSETRON [Concomitant]
     Active Substance: ONDANSETRON
     Dosage: NOT SPECIFIED
  5. SULFAMETHOXAZOLE/TRIMETHOPRIM [Concomitant]
     Active Substance: SULFAMETHOXAZOLE\TRIMETHOPRIM
     Dosage: NOT SPECIFIED
  6. DIMENHYDRINATE. [Concomitant]
     Active Substance: DIMENHYDRINATE
     Dosage: LIQUID INTRAVENOUS
  7. HYDROMORPHONE/HYDROMORPHONE HYDROCHLORIDE [Concomitant]
     Active Substance: HYDROMORPHONE
     Dosage: NOT SPECIFIED
  8. RANITIDINE. [Concomitant]
     Active Substance: RANITIDINE
  9. CISPLATIN. [Concomitant]
     Active Substance: CISPLATIN
     Dosage: SOLUTION INTRAVENOUS
  10. METHOTREXATE. [Suspect]
     Active Substance: METHOTREXATE
     Indication: OSTEOSARCOMA
  11. MELATONIN [Concomitant]
     Active Substance: MELATONIN
     Dosage: NOT SPECIFIED
  12. MACROGOL [Concomitant]
     Active Substance: POLYETHYLENE GLYCOLS
     Dosage: NOT SPECIFIED
  13. DIPHENHYDRAMINE. [Concomitant]
     Active Substance: DIPHENHYDRAMINE
     Dosage: NOT SPECIFIED
  14. DOXORUBICIN [Concomitant]
     Active Substance: DOXORUBICIN
  15. ALUMINIUM HYDROXIDE/MAGNESIUM HYDROXIDE [Concomitant]
     Active Substance: ALUMINUM HYDROXIDE\MAGNESIUM HYDROXIDE
     Dosage: NOT SPECIFIED

REACTIONS (1)
  - Mucosal inflammation [Recovered/Resolved]
